FAERS Safety Report 9462559 (Version 3)
Quarter: 2013Q3

REPORT INFORMATION
  Report Type: Spontaneous
  Country: JP (occurrence: JP)
  Receive Date: 20130816
  Receipt Date: 20130903
  Transmission Date: 20140515
  Serious: Yes (Hospitalization)
  Sender: FDA-Public Use
  Company Number: JP-B.I. PHARMACEUTICALS,INC./RIDGEFIELD-2013-BI-24337NB

PATIENT
  Age: 95 Year
  Sex: Female
  Weight: 38 kg

DRUGS (3)
  1. PRAZAXA [Suspect]
     Indication: ATRIAL FIBRILLATION
     Dosage: 150 MG
     Route: 048
     Dates: start: 20130315, end: 20130808
  2. TALION OD [Concomitant]
     Indication: RHINITIS ALLERGIC
     Dosage: 20 MG
     Route: 048
     Dates: start: 20130219
  3. BENET [Concomitant]
     Indication: OSTEOPOROSIS
     Dosage: 75 MG
     Route: 048
     Dates: start: 20130304

REACTIONS (4)
  - Depressed level of consciousness [Recovered/Resolved]
  - Gastrointestinal haemorrhage [Recovered/Resolved]
  - Gastritis [Recovered/Resolved]
  - Shock haemorrhagic [Recovered/Resolved]
